FAERS Safety Report 23793529 (Version 3)
Quarter: 2024Q2

REPORT INFORMATION
  Report Type: Spontaneous
  Country: CA (occurrence: CA)
  Receive Date: 20240429
  Receipt Date: 20240517
  Transmission Date: 20240716
  Serious: Yes (Other)
  Sender: FDA-Public Use
  Company Number: CA-SANDOZ-SDZ2024CA042657

PATIENT
  Age: 42 Year
  Sex: Male

DRUGS (9)
  1. CYCLOSPORINE [Suspect]
     Active Substance: CYCLOSPORINE
     Indication: Pityriasis rubra pilaris
     Dosage: 150 MG
     Route: 065
  2. CYCLOSPORINE [Suspect]
     Active Substance: CYCLOSPORINE
     Indication: Dermatitis exfoliative generalised
     Dosage: 200 MG
     Route: 065
  3. CYCLOSPORINE [Suspect]
     Active Substance: CYCLOSPORINE
     Indication: Rash
  4. PREDNISOLONE [Suspect]
     Active Substance: PREDNISOLONE
     Indication: Pityriasis rubra pilaris
     Dosage: 35 MG
     Route: 048
  5. PREDNISOLONE [Suspect]
     Active Substance: PREDNISOLONE
     Indication: Dermatitis exfoliative generalised
     Dosage: 40 MG
     Route: 048
  6. PREDNISOLONE [Suspect]
     Active Substance: PREDNISOLONE
     Indication: Rash
  7. BETAMETHASONE [Suspect]
     Active Substance: BETAMETHASONE\BETAMETHASONE DIPROPIONATE
     Indication: Pityriasis rubra pilaris
     Dosage: UNK
     Route: 061
  8. BETAMETHASONE [Suspect]
     Active Substance: BETAMETHASONE\BETAMETHASONE DIPROPIONATE
     Indication: Dermatitis exfoliative generalised
  9. BETAMETHASONE [Suspect]
     Active Substance: BETAMETHASONE\BETAMETHASONE DIPROPIONATE
     Indication: Rash

REACTIONS (7)
  - Condition aggravated [Recovered/Resolved]
  - Dermatitis exfoliative generalised [Recovering/Resolving]
  - Pityriasis rubra pilaris [Recovering/Resolving]
  - Therapeutic product ineffective [Recovering/Resolving]
  - Therapy non-responder [Recovered/Resolved]
  - Off label use [Recovered/Resolved]
  - Rash [Recovering/Resolving]
